FAERS Safety Report 9867440 (Version 1)
Quarter: 2014Q1

REPORT INFORMATION
  Report Type: Spontaneous
  Country: GB (occurrence: GB)
  Receive Date: 20140204
  Receipt Date: 20140204
  Transmission Date: 20141002
  Serious: Yes (Other)
  Sender: FDA-Public Use
  Company Number: GB-DRREDDYS-GER/UKI/14/0037724

PATIENT
  Age: 71 Year
  Sex: Male
  Weight: 79 kg

DRUGS (7)
  1. ATORVASTATIN [Suspect]
     Indication: MYOCARDIAL ISCHAEMIA
     Route: 048
     Dates: start: 20120414, end: 20140110
  2. CHONDROITIN SULFATE [Interacting]
     Indication: OSTEOARTHRITIS
     Route: 048
     Dates: start: 20140110, end: 20140120
  3. GLUCOSAMINE SULPHATE [Interacting]
     Indication: OSTEOARTHRITIS
     Route: 048
     Dates: start: 20140110, end: 20140120
  4. ALLOPURINOL [Concomitant]
     Indication: PRODUCT USED FOR UNKNOWN INDICATION
  5. ASPIRIN [Concomitant]
     Indication: PRODUCT USED FOR UNKNOWN INDICATION
  6. BISOPROLOL [Concomitant]
     Indication: PRODUCT USED FOR UNKNOWN INDICATION
  7. RAMIPRIL [Concomitant]
     Indication: PRODUCT USED FOR UNKNOWN INDICATION

REACTIONS (3)
  - Myalgia [Recovered/Resolved]
  - Back pain [Recovered/Resolved]
  - Drug interaction [Unknown]
